FAERS Safety Report 9626549 (Version 2)
Quarter: 2014Q2

REPORT INFORMATION
  Report Type: Spontaneous
  Country: US (occurrence: US)
  Receive Date: 20131016
  Receipt Date: 20140408
  Transmission Date: 20141212
  Serious: Yes (Hospitalization)
  Sender: FDA-Public Use
  Company Number: US-BAYER-2013-124946

PATIENT
  Age: 32 Year
  Sex: Female
  Weight: 67.12 kg

DRUGS (3)
  1. MIRENA [Suspect]
     Indication: CONTRACEPTION
     Dosage: 20 MCG/24HR, CONT
     Route: 015
     Dates: start: 20131009, end: 20131009
  2. ALBUTEROL INHALER [Concomitant]
     Indication: ASTHMA
     Dosage: UNK UNK, PRN
  3. SINGULAIR [Concomitant]
     Dosage: 10 MG, ONCE

REACTIONS (6)
  - Neurogenic shock [Recovered/Resolved]
  - Device difficult to use [Recovered/Resolved]
  - Complication of device insertion [None]
  - Hyperhidrosis [Recovered/Resolved]
  - Pulse abnormal [Recovered/Resolved]
  - Sinus bradycardia [Recovered/Resolved]
